FAERS Safety Report 15471082 (Version 2)
Quarter: 2018Q4

REPORT INFORMATION
  Report Type: Spontaneous
  Country: US (occurrence: US)
  Receive Date: 20181006
  Receipt Date: 20181024
  Transmission Date: 20190205
  Serious: No
  Sender: FDA-Public Use
  Company Number: US-TEVA-2018-US-960591

PATIENT
  Sex: Female
  Weight: 55.84 kg

DRUGS (5)
  1. ENOXAPARIN SODIUM INJECTION [Suspect]
     Active Substance: ENOXAPARIN SODIUM
     Indication: PULMONARY EMBOLISM
     Dosage: 60 MG/0.6 MG
     Route: 058
     Dates: start: 201808
  2. ENOXAPARIN SODIUM INJECTION [Suspect]
     Active Substance: ENOXAPARIN SODIUM
     Dosage: REDUCED HER DOSAGE TO ^50 TO 55MGS^ BID
     Route: 058
  3. ENOXAPARIN SODIUM INJECTION [Suspect]
     Active Substance: ENOXAPARIN SODIUM
     Dosage: 180 MILLIGRAM DAILY;
     Route: 058
  4. ENOXAPARIN SODIUM INJECTION [Suspect]
     Active Substance: ENOXAPARIN SODIUM
     Dosage: 120 MILLIGRAM DAILY;
     Route: 058
  5. ENOXAPARIN SODIUM INJECTION [Suspect]
     Active Substance: ENOXAPARIN SODIUM
     Dosage: 240 MILLIGRAM DAILY;
     Route: 058

REACTIONS (4)
  - Injection site mass [Unknown]
  - Injection site bruising [Unknown]
  - Ocular discomfort [Recovered/Resolved]
  - Injection site induration [Unknown]

NARRATIVE: CASE EVENT DATE: 201808
